FAERS Safety Report 16966916 (Version 1)
Quarter: 2019Q4

REPORT INFORMATION
  Report Type: Spontaneous
  Country: US (occurrence: US)
  Receive Date: 20191028
  Receipt Date: 20191028
  Transmission Date: 20200122
  Serious: No
  Sender: FDA-Public Use
  Company Number: US-SA-2019SA296244

PATIENT
  Sex: Female

DRUGS (1)
  1. LANTUS SOLOSTAR [Suspect]
     Active Substance: INSULIN GLARGINE
     Indication: TYPE 2 DIABETES MELLITUS
     Dosage: 10 UNITS TID AND 15 PM
     Route: 065

REACTIONS (4)
  - Feeling abnormal [Unknown]
  - Back pain [Unknown]
  - Visual impairment [Unknown]
  - Inappropriate schedule of product administration [Unknown]
